FAERS Safety Report 4473089-1 (Version None)
Quarter: 2004Q4

REPORT INFORMATION
  Report Type: 
  Country: None (occurrence: None)
  Receive Date: 20041007
  Receipt Date: 20041007
  Transmission Date: 20050328
  Serious: Yes (Other)
  Sender: FDA-Public Use
  Company Number: None

PATIENT
  Age: 49 Year
  Sex: Female
  Weight: 68.0396 kg

DRUGS (1)
  1. ORTHO-NOVUM 1/50 28 [Suspect]
     Dosage: DAILY 1 TAB
     Route: 048

REACTIONS (1)
  - METRORRHAGIA [None]
